FAERS Safety Report 8941450 (Version 2)
Quarter: 2014Q2

REPORT INFORMATION
  Report Type: Spontaneous
  Country: IT (occurrence: IT)
  Receive Date: 20121203
  Receipt Date: 20131120
  Transmission Date: 20141212
  Serious: Yes (Hospitalization)
  Sender: FDA-Public Use
  Company Number: IT-TEVA-371866ISR

PATIENT
  Age: 71 Year
  Sex: Male

DRUGS (6)
  1. CARBOPLATINO TEVA [Suspect]
     Indication: PLEURAL MESOTHELIOMA
     Dosage: 330 MILLIGRAM DAILY;
     Route: 042
     Dates: start: 20120802, end: 20121115
  2. ALIMTA [Concomitant]
     Indication: PLEURAL MESOTHELIOMA
     Dosage: 560 MILLIGRAM DAILY;
     Route: 042
     Dates: start: 20120802, end: 20121115
  3. DOBETIN [Concomitant]
     Dosage: 1 DOSAGE FORMS DAILY;
  4. LEXOTAN [Concomitant]
     Dosage: 30 GTT DAILY;
  5. STILNOX [Concomitant]
     Dosage: 1 DOSAGE FORMS DAILY;
  6. SOLDESAM [Concomitant]
     Dosage: 64 GTT DAILY;

REACTIONS (3)
  - Hyperaemia [Recovered/Resolved]
  - Dysphonia [Recovered/Resolved]
  - Face oedema [Recovered/Resolved]
